FAERS Safety Report 14589856 (Version 1)
Quarter: 2018Q1

REPORT INFORMATION
  Report Type: Spontaneous
  Country: US (occurrence: US)
  Receive Date: 20180302
  Receipt Date: 20180302
  Transmission Date: 20180509
  Serious: No
  Sender: FDA-Public Use
  Company Number: US-009507513-1803USA000763

PATIENT
  Age: 51 Year
  Sex: Female

DRUGS (2)
  1. HYDROXYZINE [Concomitant]
     Active Substance: HYDROXYZINE HYDROCHLORIDE
  2. ELOCON [Suspect]
     Active Substance: MOMETASONE FUROATE
     Dosage: UNK, THREE TIMES DAILY TO HER HANDS
     Dates: start: 2016

REACTIONS (1)
  - Drug effect incomplete [Unknown]

NARRATIVE: CASE EVENT DATE: 2016
